FAERS Safety Report 4293272-8 (Version None)
Quarter: 2004Q1

REPORT INFORMATION
  Report Type: 
  Country: None (occurrence: None)
  Receive Date: 20040126
  Receipt Date: 20031111
  Transmission Date: 20041129
  Serious: No
  Sender: FDA-Public Use
  Company Number: USA031050671

PATIENT
  Age: 65 Year
  Sex: Female
  Weight: 84 kg

DRUGS (6)
  1. FORTEO [Suspect]
     Indication: OSTEOPOROSIS
     Dates: start: 20031001
  2. ATENOLOL [Concomitant]
  3. FOLIC ACID [Concomitant]
  4. PEPCID [Concomitant]
  5. ASPIRIN [Concomitant]
  6. ANTIBIOTIC [Concomitant]

REACTIONS (2)
  - INJECTION SITE ERYTHEMA [None]
  - INJECTION SITE HAEMORRHAGE [None]
